FAERS Safety Report 8419877-8 (Version None)
Quarter: 2012Q2

REPORT INFORMATION
  Report Type: 
  Country: None (occurrence: None)
  Receive Date: 20120607
  Receipt Date: 20120604
  Transmission Date: 20120825
  Serious: Yes (Hospitalization)
  Sender: FDA-Public Use
  Company Number: US-PFIZER INC-2012134192

PATIENT
  Sex: Female
  Weight: 58.503 kg

DRUGS (7)
  1. EFFEXOR XR [Suspect]
     Dosage: 225 MG, 1X/DAY
     Route: 048
  2. DILANTIN [Suspect]
     Indication: CONVULSION
     Dosage: UNK
     Dates: start: 20010101
  3. AMLODIPINE [Concomitant]
     Dosage: UNK
  4. BENICAR HCT [Concomitant]
     Indication: HYPERTENSION
     Dosage: UNK
  5. CARBATROL [Concomitant]
     Dosage: UNK
  6. EFFEXOR XR [Suspect]
     Indication: DEPRESSION
     Dosage: 150 MG, 1X/DAY
     Route: 048
     Dates: start: 19970101
  7. EFFEXOR XR [Suspect]
     Dosage: 300 MG, 1X/DAY
     Route: 048

REACTIONS (2)
  - PAIN IN EXTREMITY [None]
  - BLOOD POTASSIUM ABNORMAL [None]
